FAERS Safety Report 9012284 (Version 2)
Quarter: 2013Q1

REPORT INFORMATION
  Report Type: Spontaneous
  Country: CA (occurrence: CA)
  Receive Date: 20130114
  Receipt Date: 20130208
  Transmission Date: 20140127
  Serious: Yes (Other)
  Sender: FDA-Public Use
  Company Number: CA-AMGEN-CANSP2012075100

PATIENT
  Age: 66 Year
  Sex: Male
  Weight: 75 kg

DRUGS (7)
  1. ENBREL [Suspect]
     Indication: RHEUMATOID ARTHRITIS
     Dosage: 50 MG, QWK
     Route: 058
     Dates: start: 201004, end: 201203
  2. METHOTREXATE [Concomitant]
     Indication: RHEUMATOID ARTHRITIS
     Dosage: 25 MG, QWK
     Route: 058
     Dates: start: 200712
  3. FOLIC ACID [Concomitant]
     Dosage: 5 MG 6/7 DAYS
     Route: 048
     Dates: start: 200712
  4. CELEBREX [Concomitant]
     Dosage: UNK
  5. DICLOFENAC [Concomitant]
     Dosage: UNK
  6. HUMIRA [Concomitant]
     Dosage: UNK
     Dates: start: 201203
  7. REMICAID [Concomitant]
     Indication: RHEUMATOID ARTHRITIS
     Dosage: UNK
     Dates: start: 200909

REACTIONS (4)
  - Rheumatoid nodule [Unknown]
  - Crohn^s disease [Recovering/Resolving]
  - Diarrhoea [Recovered/Resolved]
  - Abdominal pain [Recovered/Resolved]
